FAERS Safety Report 11812032 (Version 1)
Quarter: 2015Q4

REPORT INFORMATION
  Report Type: Spontaneous
  Country: US (occurrence: US)
  Receive Date: 20151208
  Receipt Date: 20151208
  Transmission Date: 20160305
  Serious: Yes (Hospitalization)
  Sender: FDA-Public Use
  Company Number: US-ASTRAZENECA-2015SF21529

PATIENT
  Sex: Male

DRUGS (2)
  1. SYMBICORT [Suspect]
     Active Substance: BUDESONIDE\FORMOTEROL FUMARATE DIHYDRATE
     Dosage: UNKNOWN
     Route: 055
  2. DALIRESP [Suspect]
     Active Substance: ROFLUMILAST
     Route: 048
     Dates: start: 201511

REACTIONS (1)
  - Pneumonia [Unknown]

NARRATIVE: CASE EVENT DATE: 201511
